FAERS Safety Report 12456742 (Version 3)
Quarter: 2016Q4

REPORT INFORMATION
  Report Type: Report from Study
  Country: JP (occurrence: JP)
  Receive Date: 20160610
  Receipt Date: 20161216
  Transmission Date: 20170207
  Serious: Yes (Death, Life-Threatening)
  Sender: FDA-Public Use
  Company Number: JP-EISAI MEDICAL RESEARCH-EC-2016-017592

PATIENT
  Age: 59 Year
  Sex: Female
  Weight: 56 kg

DRUGS (15)
  1. OXYCONTIN [Concomitant]
     Active Substance: OXYCODONE HYDROCHLORIDE
  2. GOSHAJINKIGAN [Concomitant]
     Active Substance: HERBALS
  3. KENALOG [Concomitant]
     Active Substance: TRIAMCINOLONE ACETONIDE
  4. HALAVEN [Suspect]
     Active Substance: ERIBULIN MESYLATE
     Indication: TUBULAR BREAST CARCINOMA
     Route: 041
     Dates: start: 20150716, end: 20150917
  5. PROMAC [Concomitant]
     Active Substance: NITROFURANTOIN
  6. CEPHARANTHINE [Concomitant]
     Active Substance: CEPHARANTHINE
  7. LEUCON [Concomitant]
  8. MAGMITT [Concomitant]
     Active Substance: MAGNESIUM OXIDE
  9. FERROMIA [Concomitant]
     Active Substance: FERROUS CITRATE
  10. CINAL [Concomitant]
     Active Substance: ASCORBIC ACID\CALCIUM PANTOTHENATE
  11. ALOSENN [Concomitant]
     Active Substance: SENNA LEAF
  12. LASIX [Concomitant]
     Active Substance: FUROSEMIDE
  13. PYDOXAL [Concomitant]
     Active Substance: PYRIDOXAL
  14. FENTOS [Concomitant]
     Active Substance: FENTANYL
  15. ZOLENDRONIC ACID HYDRATE [Concomitant]

REACTIONS (3)
  - Malignant neoplasm progression [Fatal]
  - Leukopenia [Not Recovered/Not Resolved]
  - Neutropenia [Not Recovered/Not Resolved]

NARRATIVE: CASE EVENT DATE: 20150924
